FAERS Safety Report 8059891-8 (Version None)
Quarter: 2012Q1

REPORT INFORMATION
  Report Type: 
  Country: None (occurrence: None)
  Receive Date: 20120120
  Receipt Date: 20120110
  Transmission Date: 20120608
  Serious: Yes (Hospitalization)
  Sender: FDA-Public Use
  Company Number: US-JNJFOC-20101109135

PATIENT
  Age: 42 Year
  Sex: Female
  Weight: 86.7 kg

DRUGS (14)
  1. ACETAMINOPHEN [Suspect]
     Indication: PRODUCT USED FOR UNKNOWN INDICATION
     Route: 048
  2. ETHANOL [Suspect]
     Indication: PRODUCT USED FOR UNKNOWN INDICATION
  3. LORAZEPAM [Suspect]
     Indication: PRODUCT USED FOR UNKNOWN INDICATION
  4. ALDACTAZIDE [Concomitant]
  5. ASTELIN [Concomitant]
  6. ROBITUSSIN (DEXTROMETHORPHAN) [Concomitant]
  7. AZACITIDINE [Concomitant]
  8. IBUPROFEN [Concomitant]
  9. LORATADINE [Concomitant]
  10. DEXTROAMPHETAMINE [Concomitant]
  11. ROBITUSSIN W/CODEINE [Suspect]
     Indication: PRODUCT USED FOR UNKNOWN INDICATION
  12. CYMBALTA [Concomitant]
  13. ALBUTEROL [Concomitant]
  14. ACETAMINOPHEN [Suspect]
     Route: 048

REACTIONS (6)
  - METABOLIC ACIDOSIS [None]
  - ENCEPHALOPATHY [None]
  - MULTIPLE DRUG OVERDOSE [None]
  - VOMITING [None]
  - URINARY INCONTINENCE [None]
  - LIVER FUNCTION TEST ABNORMAL [None]
